FAERS Safety Report 24287511 (Version 1)
Quarter: 2024Q3

REPORT INFORMATION
  Report Type: Spontaneous
  Country: US (occurrence: None)
  Receive Date: 20240904
  Receipt Date: 20240904
  Transmission Date: 20241017
  Serious: Yes (Hospitalization)
  Sender: Public
  Company Number: None

PATIENT
  Sex: Female

DRUGS (1)
  1. ORENCIA [Suspect]
     Active Substance: ABATACEPT
     Indication: Rheumatoid arthritis
     Dosage: FREQ: INJECT 125 MG UNDER THE SKIN (SUBCUTANEOUS INJECTION) ONCE A WEEK?
     Route: 058
     Dates: start: 20231227

REACTIONS (2)
  - Dyspnoea [None]
  - Therapy interrupted [None]
